FAERS Safety Report 15006594 (Version 1)
Quarter: 2018Q2

REPORT INFORMATION
  Report Type: Report from Study
  Country: US (occurrence: US)
  Receive Date: 20180613
  Receipt Date: 20180613
  Transmission Date: 20180711
  Serious: Yes (Death)
  Sender: FDA-Public Use
  Company Number: US-US WORLDMEDS, LLC-USW201709-001349

PATIENT
  Age: 79 Year
  Sex: Male
  Weight: 81.64 kg

DRUGS (18)
  1. APOKYN [Suspect]
     Active Substance: APOMORPHINE HYDROCHLORIDE
     Route: 058
  2. AMLODIPINE BESYLATE. [Concomitant]
     Active Substance: AMLODIPINE BESYLATE
  3. DOXAZOSIN MESYLATE. [Concomitant]
     Active Substance: DOXAZOSIN MESYLATE
  4. APOKYN [Suspect]
     Active Substance: APOMORPHINE HYDROCHLORIDE
     Route: 058
  5. SINEMET [Concomitant]
     Active Substance: CARBIDOPA\LEVODOPA
  6. RISPERDAL [Concomitant]
     Active Substance: RISPERIDONE
  7. NEUPRO [Concomitant]
     Active Substance: ROTIGOTINE
  8. DITROPAN XL [Concomitant]
     Active Substance: OXYBUTYNIN CHLORIDE
     Route: 048
  9. AVODART [Concomitant]
     Active Substance: DUTASTERIDE
  10. FLUTICASONE PROPIONATE. [Concomitant]
     Active Substance: FLUTICASONE PROPIONATE
     Route: 045
  11. NAMENDA [Concomitant]
     Active Substance: MEMANTINE HYDROCHLORIDE
  12. TRIMETHOBENZAMIDE [Concomitant]
     Active Substance: TRIMETHOBENZAMIDE
  13. DYAZIDE [Concomitant]
     Active Substance: HYDROCHLOROTHIAZIDE\TRIAMTERENE
  14. APOKYN [Suspect]
     Active Substance: APOMORPHINE HYDROCHLORIDE
     Indication: PARKINSON^S DISEASE
     Route: 058
     Dates: start: 20141210
  15. ARTHROTEC [Concomitant]
     Active Substance: DICLOFENAC SODIUM\MISOPROSTOL
  16. ASPIRIN. [Concomitant]
     Active Substance: ASPIRIN
  17. OMEPRAZOLE. [Concomitant]
     Active Substance: OMEPRAZOLE
  18. XANAX [Concomitant]
     Active Substance: ALPRAZOLAM

REACTIONS (16)
  - Hypoacusis [Unknown]
  - Asthenia [Unknown]
  - Urinary incontinence [Unknown]
  - Blood pressure decreased [Unknown]
  - Memory impairment [Unknown]
  - Neck pain [Unknown]
  - Musculoskeletal stiffness [Unknown]
  - Balance disorder [Unknown]
  - Peripheral swelling [Unknown]
  - Fall [Unknown]
  - Cardio-respiratory arrest [Fatal]
  - Hypoaesthesia oral [Recovered/Resolved]
  - Gait disturbance [Unknown]
  - Hallucination [Recovering/Resolving]
  - Sleep disorder [Unknown]
  - Drooling [Unknown]

NARRATIVE: CASE EVENT DATE: 20170914
